FAERS Safety Report 9338591 (Version 1)
Quarter: 2013Q2

REPORT INFORMATION
  Report Type: Spontaneous
  Country: US (occurrence: None)
  Receive Date: 20130605
  Receipt Date: 20130605
  Transmission Date: 20140414
  Serious: No
  Sender: FDA-Public Use
  Company Number: None

PATIENT
  Age: 30 Year
  Sex: Female
  Weight: 72.58 kg

DRUGS (2)
  1. LASTACAFT [Suspect]
     Indication: DRY EYE
     Dosage: 1 DROP DAILY OPHTHALMIC
     Route: 047
     Dates: start: 20130523, end: 20130531
  2. LASTACAFT [Suspect]
     Indication: EYE PRURITUS
     Dosage: 1 DROP DAILY OPHTHALMIC
     Route: 047
     Dates: start: 20130523, end: 20130531

REACTIONS (3)
  - Ocular hyperaemia [None]
  - Eye irritation [None]
  - Eye irritation [None]
